FAERS Safety Report 20599006 (Version 2)
Quarter: 2022Q1

REPORT INFORMATION
  Report Type: Spontaneous
  Country: US (occurrence: None)
  Receive Date: 20220315
  Receipt Date: 20220316
  Transmission Date: 20220423
  Serious: No
  Sender: FDA-Public Use
  Company Number: US-ROCHE-2858237

PATIENT
  Sex: Female
  Weight: 59.020 kg

DRUGS (2)
  1. XOLAIR [Suspect]
     Active Substance: OMALIZUMAB
     Indication: Product used for unknown indication
     Dosage: TWO 150 MG INJECTIONS PER DOSE
     Route: 058
  2. JUNEL [Concomitant]
     Active Substance: ETHINYL ESTRADIOL\NORETHINDRONE ACETATE
     Indication: Contraception
     Route: 048

REACTIONS (3)
  - Underdose [Unknown]
  - Device issue [Unknown]
  - No adverse event [Unknown]
